FAERS Safety Report 21151379 (Version 3)
Quarter: 2025Q2

REPORT INFORMATION
  Report Type: Spontaneous
  Country: ES (occurrence: ES)
  Receive Date: 20220730
  Receipt Date: 20250513
  Transmission Date: 20250717
  Serious: Yes (Hospitalization, Other)
  Sender: CELLTRION
  Company Number: ES-CELLTRION INC.-2022ES011836

PATIENT

DRUGS (21)
  1. RITUXIMAB [Suspect]
     Active Substance: RITUXIMAB
     Indication: Cutaneous sarcoidosis
     Route: 065
  2. RITUXIMAB [Suspect]
     Active Substance: RITUXIMAB
     Indication: Pulmonary sarcoidosis
  3. INFLIXIMAB [Suspect]
     Active Substance: INFLIXIMAB
     Indication: Cutaneous sarcoidosis
     Route: 048
  4. INFLIXIMAB [Suspect]
     Active Substance: INFLIXIMAB
     Indication: Pulmonary sarcoidosis
  5. ADALIMUMAB [Suspect]
     Active Substance: ADALIMUMAB
     Indication: Pulmonary sarcoidosis
     Route: 065
  6. ADALIMUMAB [Suspect]
     Active Substance: ADALIMUMAB
     Indication: Cutaneous sarcoidosis
  7. ANAKINRA [Suspect]
     Active Substance: ANAKINRA
     Indication: Cutaneous sarcoidosis
     Route: 065
  8. ANAKINRA [Suspect]
     Active Substance: ANAKINRA
     Indication: Pulmonary sarcoidosis
  9. TACROLIMUS [Suspect]
     Active Substance: TACROLIMUS
     Indication: Pulmonary sarcoidosis
     Route: 061
  10. TACROLIMUS [Suspect]
     Active Substance: TACROLIMUS
     Indication: Cutaneous sarcoidosis
  11. PREDNISOLONE [Suspect]
     Active Substance: PREDNISOLONE
     Indication: Cutaneous sarcoidosis
     Route: 065
  12. PREDNISOLONE [Suspect]
     Active Substance: PREDNISOLONE
     Indication: Pulmonary sarcoidosis
  13. HYDROXYCHLOROQUINE [Suspect]
     Active Substance: HYDROXYCHLOROQUINE
     Indication: Pulmonary sarcoidosis
     Route: 065
  14. HYDROXYCHLOROQUINE [Suspect]
     Active Substance: HYDROXYCHLOROQUINE
     Indication: Cutaneous sarcoidosis
  15. DOXYCYCLINE [Suspect]
     Active Substance: DOXYCYCLINE
     Indication: Cutaneous sarcoidosis
     Route: 065
  16. DOXYCYCLINE [Suspect]
     Active Substance: DOXYCYCLINE
     Indication: Pulmonary sarcoidosis
  17. METHOTREXATE [Suspect]
     Active Substance: METHOTREXATE
     Indication: Cutaneous sarcoidosis
     Route: 065
  18. METHOTREXATE [Suspect]
     Active Substance: METHOTREXATE
     Indication: Pulmonary sarcoidosis
  19. APREMILAST [Suspect]
     Active Substance: APREMILAST
     Indication: Cutaneous sarcoidosis
     Route: 065
  20. APREMILAST [Suspect]
     Active Substance: APREMILAST
     Indication: Off label use
  21. RUXOLITINIB [Concomitant]
     Active Substance: RUXOLITINIB
     Indication: Lymphopenia

REACTIONS (11)
  - Cutaneous sarcoidosis [Unknown]
  - Pain [Recovered/Resolved]
  - Skin infection [Recovered/Resolved]
  - Dermatitis infected [Unknown]
  - Disease progression [Not Recovered/Not Resolved]
  - Drug ineffective [Unknown]
  - Intentional product use issue [Unknown]
  - Intentional product use issue [Unknown]
  - Intentional product use issue [Unknown]
  - Drug ineffective for unapproved indication [Unknown]
  - Off label use [Unknown]
